FAERS Safety Report 10108905 (Version 1)
Quarter: 2014Q2

REPORT INFORMATION
  Report Type: Spontaneous
  Country: US (occurrence: US)
  Receive Date: 20140425
  Receipt Date: 20140425
  Transmission Date: 20141212
  Serious: Yes (Other)
  Sender: FDA-Public Use
  Company Number: US-AMGEN INC.-USASP2014029578

PATIENT
  Age: 53 Year
  Sex: Female

DRUGS (1)
  1. ENBREL [Suspect]
     Indication: PSORIASIS
     Dosage: UNK
     Route: 065
     Dates: start: 200610, end: 200612

REACTIONS (4)
  - Chorioretinopathy [Not Recovered/Not Resolved]
  - Drug hypersensitivity [Recovered/Resolved]
  - Retinal oedema [Not Recovered/Not Resolved]
  - Sinusitis [Recovered/Resolved]
